FAERS Safety Report 23726331 (Version 1)
Quarter: 2024Q2

REPORT INFORMATION
  Report Type: Spontaneous
  Country: IN (occurrence: IN)
  Receive Date: 20240410
  Receipt Date: 20240410
  Transmission Date: 20240716
  Serious: Yes (Death, Life-Threatening, Hospitalization, Other)
  Sender: FDA-Public Use
  Company Number: IN-MLMSERVICE-20240314-4887143-2

PATIENT

DRUGS (8)
  1. ROSUVASTATIN [Suspect]
     Active Substance: ROSUVASTATIN
     Indication: Acute myocardial infarction
     Dosage: HIGH-DOSE
     Route: 065
  2. TICAGRELOR [Suspect]
     Active Substance: TICAGRELOR
     Indication: Antiplatelet therapy
     Route: 065
  3. VOGLIBOSE [Concomitant]
     Active Substance: VOGLIBOSE
     Route: 048
  4. METFORMIN [Concomitant]
     Active Substance: METFORMIN HYDROCHLORIDE
     Route: 048
  5. INSULIN NOS [Concomitant]
     Active Substance: INSULIN NOS
     Route: 065
  6. ASPIRIN [Concomitant]
     Active Substance: ASPIRIN
     Indication: Product used for unknown indication
     Route: 065
  7. GLIMEPIRIDE [Concomitant]
     Active Substance: GLIMEPIRIDE
     Route: 048
  8. RAMIPRIL [Concomitant]
     Active Substance: RAMIPRIL
     Indication: Product used for unknown indication
     Route: 065

REACTIONS (5)
  - Drug interaction [Fatal]
  - Acute kidney injury [Fatal]
  - Rhabdomyolysis [Fatal]
  - Gastrointestinal haemorrhage [Fatal]
  - Vitamin D deficiency [Fatal]
